FAERS Safety Report 10070906 (Version 1)
Quarter: 2014Q2

REPORT INFORMATION
  Report Type: Spontaneous
  Country: US (occurrence: US)
  Receive Date: 20140410
  Receipt Date: 20140410
  Transmission Date: 20141212
  Serious: Yes (Death, Congenital Anomaly)
  Sender: FDA-Public Use
  Company Number: US-FRI-1000066206

PATIENT
  Sex: Female

DRUGS (1)
  1. LEXAPRO [Suspect]
     Dates: end: 200610

REACTIONS (4)
  - Cardiac failure [Fatal]
  - Ventricular fibrillation [Fatal]
  - Foetal cardiac disorder [Fatal]
  - Hypoplastic left heart syndrome [Fatal]
